FAERS Safety Report 8026024-3 (Version None)
Quarter: 2012Q1

REPORT INFORMATION
  Report Type: 
  Country: None (occurrence: None)
  Receive Date: 20120105
  Receipt Date: 20111012
  Transmission Date: 20120608
  Serious: No
  Sender: FDA-Public Use
  Company Number: US-ABBOTT-11P-163-0864296-00

PATIENT
  Age: 74 Year
  Sex: Female
  Weight: 74.002 kg

DRUGS (2)
  1. SYNTHROID [Suspect]
     Indication: HYPOTHYROIDISM
  2. SYNTHROID [Suspect]
     Indication: HYPOTHYROIDISM
     Dates: start: 19910101

REACTIONS (3)
  - DYSPNOEA [None]
  - PALPITATIONS [None]
  - ELECTROCARDIOGRAM CHANGE [None]
